FAERS Safety Report 12128836 (Version 2)
Quarter: 2016Q1

REPORT INFORMATION
  Report Type: Report from Study
  Country: CH (occurrence: CH)
  Receive Date: 20160229
  Receipt Date: 20160317
  Transmission Date: 20160526
  Serious: Yes (Other)
  Sender: FDA-Public Use
  Company Number: CH-ABBVIE-16P-151-1568269-00

PATIENT
  Sex: Female

DRUGS (1)
  1. DUODOPA [Suspect]
     Active Substance: CARBIDOPA\LEVODOPA
     Indication: PARKINSON^S DISEASE
     Dosage: MORNING DOSE: 3.6ML/H?CONTINUOUS DOSE: 3.2ML/H?EXTRA DOSE: 1.1ML
     Route: 050
     Dates: start: 201507

REACTIONS (3)
  - Dyskinesia [Unknown]
  - Neoplasm malignant [Unknown]
  - Hyperkinesia [Unknown]
